FAERS Safety Report 24884682 (Version 1)
Quarter: 2025Q1

REPORT INFORMATION
  Report Type: Spontaneous
  Country: US (occurrence: US)
  Receive Date: 20250124
  Receipt Date: 20250124
  Transmission Date: 20250409
  Serious: No
  Sender: SANOFI AVENTIS
  Company Number: US-SA-2025SA022289

PATIENT
  Age: 37 Year
  Sex: Male
  Weight: 76.47 kg

DRUGS (1)
  1. DUPIXENT [Suspect]
     Active Substance: DUPILUMAB
     Indication: Eosinophilic oesophagitis
     Dosage: 300 MG, QW
     Route: 058

REACTIONS (3)
  - Joint injury [Recovered/Resolved]
  - Gait disturbance [Recovered/Resolved]
  - Oesophagogastric fundoplasty [Recovered/Resolved]

NARRATIVE: CASE EVENT DATE: 20240901
